FAERS Safety Report 24109254 (Version 2)
Quarter: 2025Q1

REPORT INFORMATION
  Report Type: Report from Study
  Country: CA (occurrence: CA)
  Receive Date: 20240718
  Receipt Date: 20250109
  Transmission Date: 20250409
  Serious: Yes (Other)
  Sender: TAKEDA
  Company Number: CA-TAKEDA-2024TUS072081

PATIENT
  Age: 41 Year
  Sex: Female

DRUGS (24)
  1. VEDOLIZUMAB [Suspect]
     Active Substance: VEDOLIZUMAB
     Indication: Colitis ulcerative
  2. VEDOLIZUMAB [Suspect]
     Active Substance: VEDOLIZUMAB
  3. VEDOLIZUMAB [Suspect]
     Active Substance: VEDOLIZUMAB
  4. VEDOLIZUMAB [Suspect]
     Active Substance: VEDOLIZUMAB
     Dosage: 300 MILLIGRAM, Q4WEEKS
     Dates: start: 20220809
  5. VEDOLIZUMAB [Suspect]
     Active Substance: VEDOLIZUMAB
     Dosage: 300 MILLIGRAM, Q4WEEKS
  6. VEDOLIZUMAB [Suspect]
     Active Substance: VEDOLIZUMAB
     Dosage: 300 MILLIGRAM, Q4WEEKS
  7. VEDOLIZUMAB [Suspect]
     Active Substance: VEDOLIZUMAB
     Dosage: 300 MILLIGRAM, Q4WEEKS
  8. VEDOLIZUMAB [Suspect]
     Active Substance: VEDOLIZUMAB
     Dosage: 300 MILLIGRAM, Q4WEEKS
  9. VEDOLIZUMAB [Suspect]
     Active Substance: VEDOLIZUMAB
     Dosage: 300 MILLIGRAM, Q4WEEKS
  10. PANTOPRAZOLE SODIUM [Suspect]
     Active Substance: PANTOPRAZOLE SODIUM
     Indication: Product used for unknown indication
  11. MORPHINE [Concomitant]
     Active Substance: MORPHINE
  12. MORPHINE [Concomitant]
     Active Substance: MORPHINE
  13. MORPHINE SULFATE [Concomitant]
     Active Substance: MORPHINE SULFATE
  14. TEMAZEPAM [Concomitant]
     Active Substance: TEMAZEPAM
  15. PREDNISONE [Concomitant]
     Active Substance: PREDNISONE
  16. PREDNISONE [Concomitant]
     Active Substance: PREDNISONE
  17. PREDNISONE [Concomitant]
     Active Substance: PREDNISONE
  18. ZOPICLONE [Concomitant]
     Active Substance: ZOPICLONE
  19. DEXTROAMPHETAMINE SULFATE [Concomitant]
     Active Substance: DEXTROAMPHETAMINE SULFATE
  20. MIRTAZAPINE [Concomitant]
     Active Substance: MIRTAZAPINE
  21. Metadol [Concomitant]
  22. DEXATRIM [Concomitant]
     Active Substance: CAFFEINE\PHENYLPROPANOLAMINE HYDROCHLORIDE
     Indication: Attention deficit hyperactivity disorder
     Dosage: UNK UNK, QD
  23. CLONIDINE [Concomitant]
     Active Substance: CLONIDINE
  24. ZOFRAN [Concomitant]
     Active Substance: ONDANSETRON HYDROCHLORIDE

REACTIONS (9)
  - Colitis ulcerative [Not Recovered/Not Resolved]
  - Haematochezia [Recovered/Resolved]
  - Frequent bowel movements [Recovered/Resolved]
  - Pallor [Unknown]
  - Off label use [Unknown]
  - Drug ineffective [Unknown]
  - Fatigue [Unknown]
  - Nausea [Unknown]
  - Food poisoning [Unknown]

NARRATIVE: CASE EVENT DATE: 20190425
